FAERS Safety Report 10072383 (Version 4)
Quarter: 2014Q3

REPORT INFORMATION
  Report Type: Spontaneous
  Country: US (occurrence: US)
  Receive Date: 20140411
  Receipt Date: 20140724
  Transmission Date: 20150326
  Serious: Yes (Other)
  Sender: FDA-Public Use
  Company Number: US-BAYER-2014-053540

PATIENT
  Age: 30 Year
  Sex: Female
  Weight: 68.27 kg

DRUGS (3)
  1. METHADONE [Suspect]
     Active Substance: METHADONE HYDROCHLORIDE
     Indication: BACK PAIN
     Dosage: UNK
     Route: 048
     Dates: start: 2006, end: 2012
  2. FLEXERIL [Concomitant]
     Active Substance: CYCLOBENZAPRINE HYDROCHLORIDE
     Indication: BACK PAIN
     Dosage: UNK
     Route: 048
     Dates: start: 2006, end: 2012
  3. MIRENA [Suspect]
     Active Substance: LEVONORGESTREL
     Indication: CONTRACEPTION
     Dosage: 20 MCG/24HR, CONT
     Route: 015
     Dates: start: 20090514, end: 20100305

REACTIONS (10)
  - Procedural pain [None]
  - Pain [None]
  - Embedded device [None]
  - Injury [None]
  - Medical device pain [None]
  - Vomiting [None]
  - Loss of consciousness [None]
  - Device issue [None]
  - Post procedural discomfort [None]
  - Genital haemorrhage [None]

NARRATIVE: CASE EVENT DATE: 201003
